FAERS Safety Report 9966279 (Version 1)
Quarter: 2014Q1

REPORT INFORMATION
  Report Type: Report from Study
  Country: US (occurrence: US)
  Receive Date: 20140305
  Receipt Date: 20140305
  Transmission Date: 20141002
  Serious: No
  Sender: FDA-Public Use
  Company Number: US-ABBVIE-13P-163-1123169-00

PATIENT
  Age: 38 Year
  Sex: Female
  Weight: 111.23 kg

DRUGS (16)
  1. HUMIRA [Suspect]
     Indication: COLITIS ULCERATIVE
     Dates: start: 201304
  2. HUMIRA [Suspect]
     Indication: CROHN^S DISEASE
     Dosage: ONE DOSE
     Route: 058
     Dates: start: 20130705, end: 20130705
  3. IMURAN [Concomitant]
     Indication: COLITIS ULCERATIVE
  4. SIMVASTATIN [Concomitant]
     Indication: BLOOD CHOLESTEROL INCREASED
  5. SERTRALINE [Concomitant]
     Indication: DEPRESSION
  6. NORCO [Concomitant]
     Indication: PAIN
  7. WELCHOL [Concomitant]
     Indication: ABDOMINAL PAIN
  8. LAMICTAL [Concomitant]
     Indication: DEPRESSION
  9. PREDNISONE [Concomitant]
     Indication: COLITIS ULCERATIVE
  10. HYDROCHLOROTHIAZIDE [Concomitant]
     Indication: HYPERTENSION
  11. TRAZODONE [Concomitant]
     Indication: INSOMNIA
  12. DICYCLOMINE [Concomitant]
     Indication: ABDOMINAL PAIN
  13. IRON [Concomitant]
     Indication: IRON DEFICIENCY
  14. METRONIDAZOLE [Concomitant]
     Indication: COLITIS ULCERATIVE
  15. LEVAQUIN [Concomitant]
     Indication: COLITIS ULCERATIVE
  16. DILAUDID [Concomitant]
     Indication: PAIN

REACTIONS (8)
  - Decreased appetite [Not Recovered/Not Resolved]
  - Dizziness [Not Recovered/Not Resolved]
  - Dizziness [Not Recovered/Not Resolved]
  - Haematochezia [Not Recovered/Not Resolved]
  - Pyrexia [Recovered/Resolved]
  - Diarrhoea [Not Recovered/Not Resolved]
  - Nausea [Not Recovered/Not Resolved]
  - Headache [Not Recovered/Not Resolved]
